FAERS Safety Report 10714769 (Version 1)
Quarter: 2015Q1

REPORT INFORMATION
  Report Type: Spontaneous
  Country: US (occurrence: US)
  Receive Date: 20150115
  Receipt Date: 20150115
  Transmission Date: 20150721
  Serious: Yes (Death, Other)
  Sender: FDA-Public Use
  Company Number: US-NAPPMUNDI-USA-2014-0113919

PATIENT
  Age: 55 Year
  Sex: Male

DRUGS (2)
  1. ALCOHOL. [Suspect]
     Active Substance: ALCOHOL
     Indication: PRODUCT USED FOR UNKNOWN INDICATION
  2. DILAUDID [Suspect]
     Active Substance: HYDROMORPHONE HYDROCHLORIDE
     Indication: PAIN
     Dosage: 4 MG, SINGLE
     Route: 030
     Dates: start: 20140105, end: 20140105

REACTIONS (3)
  - Respiratory depression [Unknown]
  - Overdose [Fatal]
  - Respiratory distress [Unknown]

NARRATIVE: CASE EVENT DATE: 20140105
